FAERS Safety Report 6410929-0 (Version None)
Quarter: 2009Q4

REPORT INFORMATION
  Report Type: 
  Country: None (occurrence: None)
  Receive Date: 20091022
  Receipt Date: 20091015
  Transmission Date: 20100525
  Serious: No
  Sender: FDA-Public Use
  Company Number: US-B.I. PHARMACEUTICALS,INC./RIDGEFIELD-2009-BP-12055BP

PATIENT
  Sex: Female

DRUGS (5)
  1. SPIRIVA [Suspect]
     Indication: ASTHMA
     Dosage: 18 MCG
     Route: 055
     Dates: start: 20091008
  2. ADVAIR DISKUS 100/50 [Concomitant]
     Indication: ASTHMA
     Dates: start: 20090701
  3. SINGULAIR [Concomitant]
     Indication: ASTHMA
  4. SINGULAIR [Concomitant]
     Indication: MULTIPLE ALLERGIES
  5. PROVENTIL-HFA [Concomitant]
     Indication: ASTHMA

REACTIONS (2)
  - ABNORMAL SENSATION IN EYE [None]
  - VISION BLURRED [None]
